FAERS Safety Report 11422608 (Version 1)
Quarter: 2015Q3

REPORT INFORMATION
  Report Type: Spontaneous
  Country: US (occurrence: US)
  Receive Date: 20150827
  Receipt Date: 20150827
  Transmission Date: 20151125
  Serious: Yes (Hospitalization)
  Sender: FDA-Public Use
  Company Number: US-WATSON-2015-17868

PATIENT
  Sex: Female

DRUGS (2)
  1. MICROGESTIN FE [Suspect]
     Active Substance: ETHINYL ESTRADIOL\FERROUS FUMARATE\NORETHINDRONE ACETATE
     Indication: ORAL CONTRACEPTION
     Dosage: 1 DF, DAILY
     Route: 048
  2. NOVOLOG [Concomitant]
     Active Substance: INSULIN ASPART
     Indication: DIABETES MELLITUS
     Route: 058

REACTIONS (5)
  - Fatigue [Unknown]
  - Arthralgia [Recovered/Resolved]
  - Rash [Unknown]
  - Mobility decreased [Unknown]
  - Rheumatoid nodule [Recovered/Resolved]
